FAERS Safety Report 19287882 (Version 23)
Quarter: 2023Q1

REPORT INFORMATION
  Report Type: Report from Study
  Country: US (occurrence: US)
  Receive Date: 20210521
  Receipt Date: 20230328
  Transmission Date: 20230418
  Serious: Yes (Hospitalization, Other)
  Sender: FDA-Public Use
  Company Number: US-TAKEDA-US202015119

PATIENT
  Age: 38 Year
  Sex: Female
  Weight: 74.83 kg

DRUGS (12)
  1. LANADELUMAB [Suspect]
     Active Substance: LANADELUMAB
     Indication: Immune system disorder
     Dosage: 300 MILLIGRAM, Q2WEEKS
     Route: 058
     Dates: start: 20181128
  2. LANADELUMAB [Suspect]
     Active Substance: LANADELUMAB
     Indication: Adrenogenital syndrome
     Dosage: 2 MILLILITER, Q2WEEKS
     Route: 058
     Dates: start: 2018
  3. LANADELUMAB [Suspect]
     Active Substance: LANADELUMAB
     Indication: Mass
     Dosage: 2 MILLILITER, Q2WEEKS
     Route: 058
     Dates: start: 20181128
  4. LANADELUMAB [Suspect]
     Active Substance: LANADELUMAB
     Indication: Acute sinusitis
     Dosage: 2 MILLILITER, Q2WEEKS
     Route: 058
     Dates: start: 201910
  5. LANADELUMAB [Suspect]
     Active Substance: LANADELUMAB
     Indication: Generalised oedema
     Dosage: 300 MILLIGRAM, Q2WEEKS
     Route: 058
     Dates: start: 20191216
  6. LANADELUMAB [Suspect]
     Active Substance: LANADELUMAB
     Dosage: 2 MILLILITER, Q2WEEKS
     Route: 058
     Dates: start: 20191216
  7. LANADELUMAB [Suspect]
     Active Substance: LANADELUMAB
     Dosage: 300 MILLIGRAM, Q2WEEKS
     Route: 058
     Dates: start: 20191217
  8. LANADELUMAB [Suspect]
     Active Substance: LANADELUMAB
     Dosage: 300 MILLIGRAM, Q2WEEKS
     Route: 058
     Dates: start: 20191226
  9. LANADELUMAB [Suspect]
     Active Substance: LANADELUMAB
     Dosage: 300 MILLIGRAM, Q2WEEKS
     Route: 058
     Dates: start: 201912
  10. LANADELUMAB [Suspect]
     Active Substance: LANADELUMAB
     Dosage: 300 MILLIGRAM, Q2WEEKS
     Route: 058
     Dates: start: 20200810
  11. LANADELUMAB [Suspect]
     Active Substance: LANADELUMAB
     Dosage: 300 MILLIGRAM, Q2WEEKS
     Route: 058
     Dates: start: 20210901
  12. LANADELUMAB [Suspect]
     Active Substance: LANADELUMAB
     Dosage: 300 MILLIGRAM, Q2WEEKS
     Route: 058
     Dates: start: 202206

REACTIONS (6)
  - Intracranial aneurysm [Unknown]
  - Anxiety [Unknown]
  - Hereditary angioedema [Recovered/Resolved]
  - Product dose omission issue [Unknown]
  - Product availability issue [Unknown]
  - Inappropriate schedule of product administration [Unknown]

NARRATIVE: CASE EVENT DATE: 20200424
